FAERS Safety Report 9440692 (Version 3)
Quarter: 2013Q3

REPORT INFORMATION
  Report Type: Spontaneous
  Country: US (occurrence: None)
  Receive Date: 20130801
  Receipt Date: 20130808
  Transmission Date: 20140515
  Serious: Yes (Hospitalization, Other)
  Sender: FDA-Public Use
  Company Number: ADR-2013-01267

PATIENT
  Age: 20 Year
  Sex: Female

DRUGS (2)
  1. BACLOFEN [Suspect]
     Indication: DYSTONIA
  2. BACLOFEN [Suspect]

REACTIONS (17)
  - Implant site swelling [None]
  - Implant site pain [None]
  - Implant site pain [None]
  - Flushing [None]
  - Infection [None]
  - Feeling hot [None]
  - Fall [None]
  - Muscle spasms [None]
  - Feeling abnormal [None]
  - Muscle spasticity [None]
  - Dystonia [None]
  - Speech disorder [None]
  - Musculoskeletal stiffness [None]
  - Activities of daily living impaired [None]
  - Abasia [None]
  - Communication disorder [None]
  - Abnormal behaviour [None]
